FAERS Safety Report 8912632 (Version 2)
Quarter: 2012Q4

REPORT INFORMATION
  Report Type: 
  Country: US (occurrence: US)
  Receive Date: 20121115
  Receipt Date: 20121221
  Transmission Date: 20130627
  Serious: No
  Sender: FDA-Public Use
  Company Number: US-PFIZER INC-2012284456

PATIENT
  Age: 47 Year
  Sex: Female
  Weight: 70.3 kg

DRUGS (4)
  1. LYRICA [Suspect]
     Indication: PAIN
     Dosage: 100 mg, 3x/day
     Route: 048
     Dates: start: 2012, end: 20121113
  2. LYRICA [Suspect]
     Indication: INTERVERTEBRAL DISC PROTRUSION
  3. ALLOPURINOL [Concomitant]
     Indication: URIC ACID ABNORMAL
     Dosage: 100 mg, 1x/day
  4. PAXIL [Concomitant]
     Indication: DEPRESSION
     Dosage: 20 mg, 1x/day

REACTIONS (2)
  - Drug ineffective [Unknown]
  - Back pain [Unknown]
